FAERS Safety Report 18689211 (Version 7)
Quarter: 2021Q1

REPORT INFORMATION
  Report Type: Spontaneous
  Country: US (occurrence: US)
  Receive Date: 20201231
  Receipt Date: 20210223
  Transmission Date: 20210419
  Serious: No
  Sender: FDA-Public Use
  Company Number: US-SA-2020SA376399

PATIENT
  Age: 26 Year
  Sex: Male

DRUGS (2)
  1. LANTUS [Suspect]
     Active Substance: INSULIN GLARGINE
     Indication: LATENT AUTOIMMUNE DIABETES IN ADULTS
     Dosage: 6?12 UNITS, QD (IN THE EVENING BEFORE BED)
     Route: 065
     Dates: start: 2019
  2. LANTUS [Suspect]
     Active Substance: INSULIN GLARGINE
     Dosage: 4?12 UNITS ONCE DAILY
     Route: 065

REACTIONS (5)
  - Intentional product misuse [Unknown]
  - Unevaluable device issue [Unknown]
  - Drug effect less than expected [Unknown]
  - Blood glucose increased [Unknown]
  - Injection site mass [Unknown]

NARRATIVE: CASE EVENT DATE: 202012
